FAERS Safety Report 5813511-9 (Version None)
Quarter: 2008Q3

REPORT INFORMATION
  Report Type: 
  Country: None (occurrence: None)
  Receive Date: 20080717
  Receipt Date: 20080707
  Transmission Date: 20090109
  Serious: Yes (Death, Hospitalization)
  Sender: FDA-Public Use
  Company Number: US-ELI_LILLY_AND_COMPANY-US200806002671

PATIENT
  Age: 66 Year
  Sex: Male

DRUGS (6)
  1. XIGRIS [Suspect]
     Indication: SEPSIS
     Dosage: 24 UNK, UNK
     Dates: start: 20080408, end: 20080412
  2. XIGRIS [Suspect]
     Dates: start: 20080608, end: 20080610
  3. ZOSYN [Concomitant]
     Dates: start: 20080410, end: 20080421
  4. VANCOMYCIN HYDROCHLORIDE [Concomitant]
     Dates: start: 20080410, end: 20080421
  5. FLAGYL [Concomitant]
     Dates: start: 20080601
  6. LINEZOLID [Concomitant]
     Dates: start: 20080601

REACTIONS (6)
  - CYSTITIS KLEBSIELLA [None]
  - MULTI-ORGAN FAILURE [None]
  - PNEUMONIA [None]
  - SHOCK [None]
  - STAPHYLOCOCCAL BACTERAEMIA [None]
  - STAPHYLOCOCCAL SEPSIS [None]
